FAERS Safety Report 18795031 (Version 1)
Quarter: 2021Q1

REPORT INFORMATION
  Report Type: Spontaneous
  Country: CO (occurrence: CO)
  Receive Date: 20210127
  Receipt Date: 20210127
  Transmission Date: 20210419
  Serious: Yes (Other)
  Sender: FDA-Public Use
  Company Number: CO-AMGEN-COLSP2021009960

PATIENT
  Age: 34 Year
  Sex: Male
  Weight: 65 kg

DRUGS (5)
  1. MVASI [Suspect]
     Active Substance: BEVACIZUMAB-AWWB
     Indication: HAEMANGIOPERICYTOMA
     Dosage: 975 MILLIGRAM, QD
     Route: 042
     Dates: start: 20210115
  2. APREPITANT. [Concomitant]
     Active Substance: APREPITANT
     Indication: HAEMANGIOPERICYTOMA
     Dosage: (80 + 125) MILLIGRAM, QD
     Route: 048
     Dates: start: 20210115
  3. DEXAMETHASONE PHOSPHATE [Concomitant]
     Active Substance: DEXAMETHASONE PHOSPHATE
     Indication: HAEMANGIOPERICYTOMA
     Dosage: 4 MILLIGRAM, QD
     Route: 042
     Dates: start: 20210115
  4. TEMOZOLOMIDE. [Concomitant]
     Active Substance: TEMOZOLOMIDE
     Indication: HAEMANGIOPERICYTOMA
     Dosage: 140 MILLIGRAM, QD
     Route: 048
     Dates: start: 20210106
  5. ONDANSETRON [Concomitant]
     Active Substance: ONDANSETRON
     Indication: HAEMANGIOPERICYTOMA
     Dosage: 8 MILLIGRAM, Q8H
     Route: 048
     Dates: start: 20210106

REACTIONS (1)
  - Off label use [Not Recovered/Not Resolved]

NARRATIVE: CASE EVENT DATE: 20210115
